FAERS Safety Report 5532471-1 (Version None)
Quarter: 2007Q4

REPORT INFORMATION
  Report Type: 
  Country: None (occurrence: None)
  Receive Date: 20071203
  Receipt Date: 20071121
  Transmission Date: 20080405
  Serious: Yes (Hospitalization)
  Sender: FDA-Public Use
  Company Number: FR-PFIZER INC-2007098386

PATIENT
  Sex: Male

DRUGS (4)
  1. ZITHROMAX [Suspect]
     Indication: LUNG DISORDER
     Route: 048
     Dates: start: 20070717, end: 20070722
  2. KARDEGIC [Interacting]
     Route: 048
  3. ROCEPHIN [Interacting]
     Indication: LUNG DISORDER
     Dosage: DAILY DOSE:3GRAM
     Route: 042
     Dates: start: 20070717, end: 20070722
  4. PREVISCAN [Interacting]
     Route: 048

REACTIONS (3)
  - DRUG INTERACTION [None]
  - INTERNATIONAL NORMALISED RATIO INCREASED [None]
  - SUBDURAL HAEMATOMA [None]
